FAERS Safety Report 9554193 (Version 2)
Quarter: 2013Q3

REPORT INFORMATION
  Report Type: Report from Study
  Country: CA (occurrence: CA)
  Receive Date: 20130925
  Receipt Date: 20130925
  Transmission Date: 20140515
  Serious: Yes (Death)
  Sender: FDA-Public Use
  Company Number: CA-ABBVIE-13P-028-1133565-00

PATIENT
  Age: 66 Year
  Sex: Male
  Weight: 60 kg

DRUGS (3)
  1. HUMIRA [Suspect]
     Indication: ANKYLOSING SPONDYLITIS
     Route: 058
     Dates: start: 20120625
  2. DABIGATRAN [Concomitant]
     Indication: PRODUCT USED FOR UNKNOWN INDICATION
  3. TYLENOL [Concomitant]
     Indication: PRODUCT USED FOR UNKNOWN INDICATION

REACTIONS (11)
  - Myocardial infarction [Fatal]
  - Cardiovascular disorder [Fatal]
  - Respiratory acidosis [Fatal]
  - Metabolic acidosis [Fatal]
  - Chest discomfort [Fatal]
  - Tachyarrhythmia [Fatal]
  - Bradyarrhythmia [Fatal]
  - Pulmonary embolism [Fatal]
  - Brain oedema [Fatal]
  - Pleural effusion [Fatal]
  - Drug dose omission [Unknown]
